FAERS Safety Report 15119286 (Version 1)
Quarter: 2018Q3

REPORT INFORMATION
  Report Type: Spontaneous
  Country: DE (occurrence: DE)
  Receive Date: 20180709
  Receipt Date: 20180709
  Transmission Date: 20181010
  Serious: Yes (Hospitalization)
  Sender: FDA-Public Use
  Company Number: DE-ROCHE-2150240

PATIENT
  Age: 66 Year
  Sex: Female
  Weight: 48 kg

DRUGS (7)
  1. ZYDELIG [Suspect]
     Active Substance: IDELALISIB
     Route: 065
     Dates: start: 20170417
  2. ZYDELIG [Suspect]
     Active Substance: IDELALISIB
     Indication: GENE MUTATION
     Route: 065
     Dates: start: 20170320, end: 20170410
  3. RITUXIMAB. [Suspect]
     Active Substance: RITUXIMAB
     Indication: CHRONIC LYMPHOCYTIC LEUKAEMIA
     Dosage: 5 INFUSIONS
     Route: 065
     Dates: start: 201702, end: 201711
  4. PANTOPRAZOL [Concomitant]
     Active Substance: PANTOPRAZOLE SODIUM
     Route: 065
  5. RITUXIMAB. [Suspect]
     Active Substance: RITUXIMAB
     Indication: GENE MUTATION
  6. ZYDELIG [Suspect]
     Active Substance: IDELALISIB
     Indication: CHRONIC LYMPHOCYTIC LEUKAEMIA
     Route: 048
     Dates: start: 20170201, end: 201712
  7. OPIPRAMOL [Concomitant]
     Active Substance: OPIPRAMOL
     Route: 065

REACTIONS (10)
  - Hypochromic anaemia [Unknown]
  - Rectal haemorrhage [Unknown]
  - Gastroenteritis norovirus [Unknown]
  - Peripheral swelling [Unknown]
  - Viral infection [Unknown]
  - Pneumonia influenzal [Unknown]
  - Pleural effusion [Unknown]
  - Hypokalaemia [Unknown]
  - Gastroenteritis norovirus [Unknown]
  - Diarrhoea [Unknown]

NARRATIVE: CASE EVENT DATE: 20170410
